FAERS Safety Report 18423672 (Version 1)
Quarter: 2020Q4

REPORT INFORMATION
  Report Type: Spontaneous
  Country: US (occurrence: US)
  Receive Date: 20201024
  Receipt Date: 20201024
  Transmission Date: 20210114
  Serious: Yes (Death, Life-Threatening, Hospitalization, Other)
  Sender: FDA-Public Use
  Company Number: US-MACLEODS PHARMACEUTICALS US LTD-MAC2020028729

PATIENT

DRUGS (2)
  1. DILTIAZEM. [Suspect]
     Active Substance: DILTIAZEM
     Indication: PRODUCT USED FOR UNKNOWN INDICATION
     Dosage: 20 DOSAGE FORM, INGESTED AT AN UNKNOWN TIME
     Route: 065
  2. METFORMIN [Suspect]
     Active Substance: METFORMIN HYDROCHLORIDE
     Indication: PRODUCT USED FOR UNKNOWN INDICATION
     Dosage: 40 DOSAGE FORM, INGESTION (20 G), AT AN UNKNOWN TIME
     Route: 065

REACTIONS (9)
  - Haemodynamic instability [Unknown]
  - Mental status changes [Unknown]
  - Suicide attempt [Unknown]
  - Somnolence [Unknown]
  - Overdose [Fatal]
  - Lethargy [Unknown]
  - Bradycardia [Unknown]
  - Hypotension [Unknown]
  - Lactic acidosis [Unknown]
